FAERS Safety Report 24809421 (Version 1)
Quarter: 2025Q1

REPORT INFORMATION
  Report Type: Spontaneous
  Country: IT (occurrence: IT)
  Receive Date: 20250106
  Receipt Date: 20250106
  Transmission Date: 20250408
  Serious: Yes (Other)
  Sender: TEVA
  Company Number: IT-TEVA-VS-3283111

PATIENT

DRUGS (2)
  1. EPIRUBICIN [Suspect]
     Active Substance: EPIRUBICIN
     Indication: Small cell lung cancer
     Dosage: ON DAY 1 EVERY 3 WEEKS
     Route: 050
  2. PACLITAXEL [Suspect]
     Active Substance: PACLITAXEL
     Indication: Small cell lung cancer
     Dosage: ON DAY 1 EVERY 3 WEEKS
     Route: 065

REACTIONS (2)
  - Cardiotoxicity [Unknown]
  - Myocardial ischaemia [Unknown]
